FAERS Safety Report 18849704 (Version 2)
Quarter: 2021Q1

REPORT INFORMATION
  Report Type: Spontaneous
  Country: US (occurrence: US)
  Receive Date: 20210205
  Receipt Date: 20210303
  Transmission Date: 20210420
  Serious: Yes (Hospitalization, Other)
  Sender: FDA-Public Use
  Company Number: US-HIKMA PHARMACEUTICALS USA INC.-US-H14001-21-53548

PATIENT
  Age: 80 Year
  Sex: Male

DRUGS (6)
  1. CARVEDILOL. [Concomitant]
     Active Substance: CARVEDILOL
     Indication: VENTRICULAR TACHYCARDIA
     Dosage: UNKNOWN
     Route: 065
  2. AMIODARONE [Suspect]
     Active Substance: AMIODARONE
     Route: 065
  3. AMIODARONE [Suspect]
     Active Substance: AMIODARONE
     Indication: VENTRICULAR TACHYCARDIA
     Route: 065
  4. AMIODARONE [Suspect]
     Active Substance: AMIODARONE
     Dosage: LOADED DOSE
     Route: 065
  5. FLECAINIDE [Suspect]
     Active Substance: FLECAINIDE
     Indication: VENTRICULAR TACHYCARDIA
     Dosage: UNKNOWN
     Route: 065
  6. AMIODARONE [Suspect]
     Active Substance: AMIODARONE
     Dosage: TITRATED UP
     Route: 065

REACTIONS (10)
  - Dysarthria [Recovered/Resolved]
  - Neurotoxicity [Recovered/Resolved]
  - Dysmetria [Recovered/Resolved]
  - Vomiting [Recovered/Resolved]
  - Ataxia [Recovered/Resolved]
  - Vertigo [Recovered/Resolved]
  - Decreased vibratory sense [Recovered/Resolved]
  - Dyskinesia [Recovered/Resolved]
  - Nausea [Recovered/Resolved]
  - Nystagmus [Recovered/Resolved]
